FAERS Safety Report 15675861 (Version 19)
Quarter: 2023Q1

REPORT INFORMATION
  Report Type: Report from Study
  Country: JP (occurrence: JP)
  Receive Date: 20181130
  Receipt Date: 20230222
  Transmission Date: 20230418
  Serious: Yes (Hospitalization)
  Sender: FDA-Public Use
  Company Number: JP-ABBVIE-18S-087-2569706-00

PATIENT
  Age: 69 Year
  Sex: Female

DRUGS (20)
  1. CARBIDOPA\LEVODOPA [Suspect]
     Active Substance: CARBIDOPA\LEVODOPA
     Indication: Parkinson^s disease
     Dosage: MD 9 ML CD 1.7 ML/HRS ? 16 HRS
     Route: 050
     Dates: start: 20170904
  2. CARBIDOPA\LEVODOPA [Suspect]
     Active Substance: CARBIDOPA\LEVODOPA
     Dosage: MD: 5 ML CD: 1.6 ML/HR X 16 HRS ED: 0.7 ML/UNIT X 3 TIMES
     Route: 050
     Dates: start: 20180525, end: 2018
  3. CARBIDOPA\LEVODOPA [Suspect]
     Active Substance: CARBIDOPA\LEVODOPA
     Dosage: DOSAGE DECREASED
     Route: 050
     Dates: start: 2018, end: 2018
  4. CARBIDOPA\LEVODOPA [Suspect]
     Active Substance: CARBIDOPA\LEVODOPA
     Dosage: MD: 5 ML?CD: 2.6 ML/HR ? 16 HRS?ED: 1.0 ML/UNIT ? 4
     Route: 050
     Dates: start: 2018, end: 20190408
  5. CARBIDOPA\LEVODOPA [Suspect]
     Active Substance: CARBIDOPA\LEVODOPA
     Dosage: MD: 9 ML?CD: 1.7 ML/HR ? 16 HRS?ED: 1 ML/UNIT ? 4
     Route: 050
     Dates: start: 20190408, end: 20191012
  6. CARBIDOPA\LEVODOPA [Suspect]
     Active Substance: CARBIDOPA\LEVODOPA
     Dosage: MD: 6 ML, CD: 1.6 ML/HR ?- 16 HRS, ED: 1.0 ML/UNIT ?- 2
     Route: 050
     Dates: start: 20191013, end: 20200124
  7. CARBIDOPA\LEVODOPA [Suspect]
     Active Substance: CARBIDOPA\LEVODOPA
     Dosage: MD: 6 ML, CD: 1.3 ML/HR ?- 16 HRS, ED: 0.8 ML/UNIT ?- 4
     Route: 050
     Dates: start: 20200124
  8. ESOMEPRAZOLE MAGNESIUM [Concomitant]
     Active Substance: ESOMEPRAZOLE MAGNESIUM
     Indication: Product used for unknown indication
     Route: 048
     Dates: start: 20190802
  9. CEFAZOLIN [Suspect]
     Active Substance: CEFAZOLIN
     Indication: Product used for unknown indication
     Route: 050
  10. LANSOPRAZOLE [Suspect]
     Active Substance: LANSOPRAZOLE
     Indication: Product used for unknown indication
     Route: 050
  11. NEUPRO [Suspect]
     Active Substance: ROTIGOTINE
     Indication: Parkinson^s disease
     Route: 062
     Dates: end: 20190221
  12. FAMOTIDINE [Concomitant]
     Active Substance: FAMOTIDINE
     Indication: Product used for unknown indication
     Route: 048
     Dates: end: 20190801
  13. SENNOSIDES [Concomitant]
     Active Substance: SENNOSIDES
     Indication: Product used for unknown indication
     Route: 048
     Dates: end: 20200220
  14. ZOPICLONE [Concomitant]
     Active Substance: ZOPICLONE
     Indication: Product used for unknown indication
     Route: 048
     Dates: end: 20190409
  15. ALOSENN [Concomitant]
     Indication: Product used for unknown indication
     Route: 048
     Dates: start: 20180709
  16. MOSAPRIDE CITRATE [Concomitant]
     Active Substance: MOSAPRIDE CITRATE
     Indication: Product used for unknown indication
     Route: 048
  17. LEVODOPA BENSERAZIDE HYDROCHLORIDE [Concomitant]
     Indication: Parkinson^s disease
     Route: 048
  18. HERBALS [Concomitant]
     Active Substance: HERBALS
     Indication: Product used for unknown indication
     Dosage: EXTRACT
     Route: 048
  19. MIRABEGRON [Concomitant]
     Active Substance: MIRABEGRON
     Indication: Product used for unknown indication
     Route: 048
  20. ESZOPICLONE [Concomitant]
     Active Substance: ESZOPICLONE
     Indication: Product used for unknown indication
     Route: 048
     Dates: start: 20190410

REACTIONS (11)
  - Spinal compression fracture [Recovered/Resolved]
  - On and off phenomenon [Recovering/Resolving]
  - Dyskinesia [Recovering/Resolving]
  - Anxiety [Not Recovered/Not Resolved]
  - White blood cell count decreased [Recovered/Resolved]
  - Chronic gastritis [Recovering/Resolving]
  - Incorrect route of product administration [Unknown]
  - Speech disorder [Unknown]
  - Constipation [Recovering/Resolving]
  - Constipation [Recovering/Resolving]
  - Dyskinesia [Unknown]

NARRATIVE: CASE EVENT DATE: 20170912
